FAERS Safety Report 6140872-6 (Version None)
Quarter: 2009Q2

REPORT INFORMATION
  Report Type: 
  Country: None (occurrence: None)
  Receive Date: 20090402
  Receipt Date: 20080313
  Transmission Date: 20091009
  Serious: No
  Sender: FDA-Public Use
  Company Number: US-KINGPHARMUSA00001-K200800314

PATIENT
  Sex: Female

DRUGS (2)
  1. SKELAXIN [Suspect]
     Indication: BACK PAIN
     Dosage: 800 MG, UNK
     Route: 048
     Dates: start: 20080310, end: 20080311
  2. RELAFEN [Concomitant]
     Indication: BACK PAIN
     Dosage: UNK, UNK
     Route: 048
     Dates: start: 20080201

REACTIONS (3)
  - DRUG INEFFECTIVE [None]
  - NAUSEA [None]
  - VOMITING [None]
